FAERS Safety Report 10927860 (Version 2)
Quarter: 2015Q2

REPORT INFORMATION
  Report Type: Spontaneous
  Country: JP (occurrence: JP)
  Receive Date: 20150319
  Receipt Date: 20150512
  Transmission Date: 20150821
  Serious: Yes (Hospitalization)
  Sender: FDA-Public Use
  Company Number: JP-AMGEN-JPNSP2015021227

PATIENT
  Age: 6 Decade
  Sex: Male
  Weight: 67 kg

DRUGS (53)
  1. BAKTAR [Suspect]
     Active Substance: SULFAMETHOXAZOLE\TRIMETHOPRIM
     Indication: PNEUMOCYSTIS JIROVECII PNEUMONIA
     Dosage: 0.5 DF, QD
     Route: 048
     Dates: start: 20150303, end: 20150317
  2. BAKTAR [Suspect]
     Active Substance: SULFAMETHOXAZOLE\TRIMETHOPRIM
     Dosage: 0.5 DF, QD
     Route: 048
     Dates: start: 20150319
  3. LENDORMIN D [Concomitant]
     Active Substance: BROTIZOLAM
     Dosage: 0.25 MG, QD
     Route: 048
     Dates: start: 20150318
  4. CALONAL [Concomitant]
     Active Substance: ACETAMINOPHEN
     Dosage: 400 MG, PRN
     Route: 048
     Dates: start: 20150304, end: 20150305
  5. G-LASTA [Suspect]
     Active Substance: PEGFILGRASTIM
     Indication: COLONY STIMULATING FACTOR PROPHYLAXIS
     Dosage: 3.6 MG, QD
     Route: 058
     Dates: start: 20150218, end: 20150218
  6. VOLTAREN [Concomitant]
     Active Substance: DICLOFENAC SODIUM
     Dosage: 50 MG, UNK
     Route: 048
     Dates: start: 20150319
  7. TRAMCET [Concomitant]
     Active Substance: ACETAMINOPHEN\TRAMADOL
     Dosage: 4 DF, UNK
     Route: 048
     Dates: start: 20150227, end: 20150309
  8. THYRADIN S [Concomitant]
     Active Substance: LEVOTHYROXINE SODIUM
     Indication: HYPOTHYROIDISM
     Dosage: 125 MUG, QD
     Route: 048
     Dates: end: 20150308
  9. MYSLEE [Concomitant]
     Active Substance: ZOLPIDEM TARTRATE
     Dosage: 20 MG, QD
     Route: 048
     Dates: start: 20150312, end: 20150314
  10. LENDORMIN D [Concomitant]
     Active Substance: BROTIZOLAM
     Indication: INSOMNIA
     Dosage: 0.25 MG, QD
     Route: 048
     Dates: end: 20150303
  11. PARIET [Concomitant]
     Active Substance: RABEPRAZOLE SODIUM
     Dosage: 10 MG, QD
     Route: 048
     Dates: start: 20150310, end: 20150310
  12. MAGMITT [Concomitant]
     Active Substance: MAGNESIUM OXIDE
     Dosage: 1650 MG, UNK
     Route: 048
     Dates: start: 20150312, end: 20150318
  13. AMLODIN OD [Concomitant]
     Active Substance: AMLODIPINE BESYLATE
     Indication: HYPERTENSION
     Dosage: 5 MG, QD
     Route: 048
     Dates: end: 20150318
  14. PARIET [Concomitant]
     Active Substance: RABEPRAZOLE SODIUM
     Dosage: 20 MG, QD
     Route: 048
     Dates: start: 20150309, end: 20150309
  15. VFEND [Concomitant]
     Active Substance: VORICONAZOLE
     Dosage: 200 MG, BID
     Route: 048
     Dates: start: 20150303, end: 20150318
  16. MEROPEN [Concomitant]
     Active Substance: MEROPENEM
     Indication: FEBRILE NEUTROPENIA
     Dosage: 1 G, UNK
     Route: 041
     Dates: start: 20150227, end: 20150309
  17. MAGMITT [Concomitant]
     Active Substance: MAGNESIUM OXIDE
     Dosage: 330 MG, BID
     Route: 048
     Dates: start: 20150319, end: 20150324
  18. MYSLEE [Concomitant]
     Active Substance: ZOLPIDEM TARTRATE
     Indication: INSOMNIA
     Dosage: 10 MG, QD
     Route: 048
     Dates: end: 20150308
  19. MYSLEE [Concomitant]
     Active Substance: ZOLPIDEM TARTRATE
     Dosage: 20 MG, QD
     Route: 048
     Dates: start: 20150318, end: 20150318
  20. VFEND [Concomitant]
     Active Substance: VORICONAZOLE
     Indication: ANTIFUNGAL PROPHYLAXIS
     Dosage: 300 MG, BID
     Route: 048
     Dates: start: 20150302, end: 20150302
  21. CALONAL [Concomitant]
     Active Substance: ACETAMINOPHEN
     Indication: PAIN
     Dosage: 400 MG, PRN
     Route: 048
     Dates: start: 20150227, end: 20150228
  22. RIMATIL [Concomitant]
     Active Substance: BUCILLAMINE
     Dosage: 200 MG, QD
     Route: 048
     Dates: start: 20150304, end: 20150319
  23. THYRADIN S [Concomitant]
     Active Substance: LEVOTHYROXINE SODIUM
     Dosage: 225 MUG, QD
     Route: 048
     Dates: start: 20150309, end: 20150309
  24. VALIXA [Concomitant]
     Active Substance: VALGANCICLOVIR
     Indication: CYTOMEGALOVIRUS CHORIORETINITIS
     Dosage: 900 MG, BID
     Route: 048
     Dates: end: 20150318
  25. MAGMITT [Concomitant]
     Active Substance: MAGNESIUM OXIDE
     Dosage: 990 MG, UNK
     Route: 048
     Dates: start: 20150307, end: 20150309
  26. MAGMITT [Concomitant]
     Active Substance: MAGNESIUM OXIDE
     Dosage: 330 MG, BID
     Route: 048
     Dates: start: 20150401
  27. MYSLEE [Concomitant]
     Active Substance: ZOLPIDEM TARTRATE
     Dosage: 10 MG, QD
     Route: 048
     Dates: start: 20150319
  28. GASLON N_OD [Concomitant]
     Active Substance: IRSOGLADINE MALEATE
     Indication: PROPHYLAXIS AGAINST GASTROINTESTINAL ULCER
     Dosage: 2 MG, BID
     Route: 048
     Dates: end: 20150308
  29. GASLON N_OD [Concomitant]
     Active Substance: IRSOGLADINE MALEATE
     Dosage: 2 MG, BID
     Route: 048
     Dates: start: 20150310, end: 20150310
  30. GASLON N_OD [Concomitant]
     Active Substance: IRSOGLADINE MALEATE
     Dosage: 2 MG, BID
     Route: 048
     Dates: start: 20150312, end: 20150317
  31. RIMATIL [Concomitant]
     Active Substance: BUCILLAMINE
     Indication: RHEUMATOID ARTHRITIS
     Dosage: 100 MG, QD
     Route: 048
     Dates: end: 20150303
  32. VOLTAREN [Concomitant]
     Active Substance: DICLOFENAC SODIUM
     Indication: RHEUMATOID ARTHRITIS
     Dosage: 25 MG, TID
     Route: 048
     Dates: end: 20150318
  33. TRAMCET [Concomitant]
     Active Substance: ACETAMINOPHEN\TRAMADOL
     Dosage: 1 DF, TID
     Route: 048
     Dates: start: 20150310, end: 20150318
  34. VALIXA [Concomitant]
     Active Substance: VALGANCICLOVIR
     Dosage: 450 MG, BID
     Route: 048
     Dates: start: 20150319
  35. PARIET [Concomitant]
     Active Substance: RABEPRAZOLE SODIUM
     Indication: PROPHYLAXIS AGAINST GASTROINTESTINAL ULCER
     Dosage: 10 MG, QD
     Route: 048
     Dates: end: 20150308
  36. PARIET [Concomitant]
     Active Substance: RABEPRAZOLE SODIUM
     Dosage: 10 MG, QD
     Route: 048
     Dates: start: 20150319
  37. OXYCONTIN [Concomitant]
     Active Substance: OXYCODONE HYDROCHLORIDE
     Indication: PAIN
     Dosage: 10 MG, BID
     Route: 048
     Dates: start: 20150303, end: 20150304
  38. CALONAL [Concomitant]
     Active Substance: ACETAMINOPHEN
     Dosage: 800 MG, PRN
     Route: 048
     Dates: start: 20150301, end: 20150303
  39. TRAMCET [Concomitant]
     Active Substance: ACETAMINOPHEN\TRAMADOL
     Indication: RHEUMATOID ARTHRITIS
     Dosage: 1 DF, TID
     Route: 048
     Dates: end: 20150226
  40. TRAMCET [Concomitant]
     Active Substance: ACETAMINOPHEN\TRAMADOL
     Dosage: 2 DF, UNK
     Route: 048
     Dates: start: 20150319
  41. MAGMITT [Concomitant]
     Active Substance: MAGNESIUM OXIDE
     Indication: CONSTIPATION
     Dosage: 330 MG, BID
     Route: 048
     Dates: end: 20150306
  42. MYSLEE [Concomitant]
     Active Substance: ZOLPIDEM TARTRATE
     Dosage: 10 MG, QD
     Route: 048
     Dates: start: 20150315, end: 20150317
  43. PARIET [Concomitant]
     Active Substance: RABEPRAZOLE SODIUM
     Dosage: 20 MG, QD
     Route: 048
     Dates: start: 20150318, end: 20150318
  44. BAKTAR [Suspect]
     Active Substance: SULFAMETHOXAZOLE\TRIMETHOPRIM
     Dosage: 1 DF, QD
     Route: 048
     Dates: start: 20150318, end: 20150318
  45. THYRADIN S [Concomitant]
     Active Substance: LEVOTHYROXINE SODIUM
     Dosage: 125 MUG, QD
     Route: 048
     Dates: start: 20150310
  46. MYSLEE [Concomitant]
     Active Substance: ZOLPIDEM TARTRATE
     Dosage: 20 MG, QD
     Route: 048
     Dates: start: 20150309, end: 20150310
  47. MYSLEE [Concomitant]
     Active Substance: ZOLPIDEM TARTRATE
     Dosage: 10 MG, QD
     Route: 048
     Dates: start: 20150311, end: 20150311
  48. GASLON N_OD [Concomitant]
     Active Substance: IRSOGLADINE MALEATE
     Dosage: 4 MG, BID
     Route: 048
     Dates: start: 20150309, end: 20150309
  49. GASLON N_OD [Concomitant]
     Active Substance: IRSOGLADINE MALEATE
     Dosage: 4 MG, BID
     Route: 048
     Dates: start: 20150318, end: 20150318
  50. GASLON N_OD [Concomitant]
     Active Substance: IRSOGLADINE MALEATE
     Dosage: 2 MG, BID
     Route: 048
     Dates: start: 20150319
  51. PARIET [Concomitant]
     Active Substance: RABEPRAZOLE SODIUM
     Dosage: 10 MG, QD
     Route: 048
     Dates: start: 20150312, end: 20150317
  52. OXINORM [Concomitant]
     Active Substance: OXYCODONE HYDROCHLORIDE
     Indication: PAIN
     Dosage: 5 MG, PRN
     Route: 048
     Dates: start: 20150303, end: 20150308
  53. BFLUID [Concomitant]
     Active Substance: AMINO ACIDS\DEXTROSE\ELECTROLYTES NOS\VITAMINS
     Indication: HYPOPHAGIA
     Dosage: 1500 ML, UNK
     Route: 041
     Dates: start: 20150227, end: 20150302

REACTIONS (8)
  - Blood fibrinogen increased [Unknown]
  - Abdominal pain upper [Recovered/Resolved]
  - Pyrexia [Recovered/Resolved]
  - C-reactive protein increased [Recovered/Resolved]
  - Splenomegaly [Recovered/Resolved]
  - Fibrin D dimer increased [Unknown]
  - Fibrin degradation products increased [Recovered/Resolved]
  - Hepatic function abnormal [Recovered/Resolved]

NARRATIVE: CASE EVENT DATE: 20150225
